FAERS Safety Report 6961337-5 (Version None)
Quarter: 2010Q3

REPORT INFORMATION
  Report Type: 
  Country: None (occurrence: None)
  Receive Date: 20100901
  Receipt Date: 20100826
  Transmission Date: 20110219
  Serious: Yes (Other)
  Sender: FDA-Public Use
  Company Number: A0878718A

PATIENT
  Age: 60 Year
  Sex: Male
  Weight: 56.8 kg

DRUGS (3)
  1. VALTREX [Suspect]
     Indication: PRODUCT USED FOR UNKNOWN INDICATION
     Route: 048
  2. FOSRENOL [Suspect]
     Dosage: 1000MG SEE DOSAGE TEXT
     Route: 065
  3. RENAGEL [Concomitant]

REACTIONS (3)
  - CEREBROVASCULAR ACCIDENT [None]
  - CONVULSION [None]
  - HYPERSENSITIVITY [None]
